FAERS Safety Report 18544722 (Version 2)
Quarter: 2020Q4

REPORT INFORMATION
  Report Type: Spontaneous
  Country: US (occurrence: US)
  Receive Date: 20201125
  Receipt Date: 20201130
  Transmission Date: 20210114
  Serious: No
  Sender: FDA-Public Use
  Company Number: US-TEVA-2020-US-1853212

PATIENT

DRUGS (1)
  1. ESTRADIOL TEVA [Suspect]
     Active Substance: ESTRADIOL
     Dosage: HAS BEEN ON THIS MED AND DOSE FOR 42 YEARS
     Route: 065

REACTIONS (8)
  - Nausea [Unknown]
  - Middle insomnia [Unknown]
  - Disorientation [Unknown]
  - Asthenia [Unknown]
  - Cold sweat [Unknown]
  - Product quality issue [Unknown]
  - Product formulation issue [Unknown]
  - Movement disorder [Unknown]
